FAERS Safety Report 9338579 (Version 1)
Quarter: 2013Q2

REPORT INFORMATION
  Report Type: Spontaneous
  Country: US (occurrence: None)
  Receive Date: 20130605
  Receipt Date: 20130605
  Transmission Date: 20140414
  Serious: Yes (Disabling)
  Sender: FDA-Public Use
  Company Number: None

PATIENT
  Age: 44 Year
  Sex: Female
  Weight: 61.24 kg

DRUGS (1)
  1. AFRIN [Suspect]
     Indication: SINUS CONGESTION
     Dosage: 2-3 SPRAYS, 2X/DAY, NASAL
     Route: 045
     Dates: start: 20130527, end: 20130602

REACTIONS (2)
  - Anosmia [None]
  - Product label issue [None]
